FAERS Safety Report 23778549 (Version 1)
Quarter: 2024Q2

REPORT INFORMATION
  Report Type: Spontaneous
  Country: US (occurrence: None)
  Receive Date: 20240423
  Receipt Date: 20240423
  Transmission Date: 20240716
  Serious: Yes (Hospitalization)
  Sender: FDA-Public Use
  Company Number: None

PATIENT
  Sex: Female

DRUGS (10)
  1. MYCOPHENOLATE MOFETIL [Suspect]
     Active Substance: MYCOPHENOLATE MOFETIL
     Indication: Renal transplant
     Dosage: FREQUENCY : EVERY 12 HOURS;?
     Route: 048
  2. AMLODIPINE [Concomitant]
     Active Substance: AMLODIPINE BESYLATE
  3. ATORVASTATIN [Concomitant]
     Active Substance: ATORVASTATIN
  4. CALCITRIOL [Concomitant]
     Active Substance: CALCITRIOL
  5. CARVEDILOL [Concomitant]
     Active Substance: CARVEDILOL
  6. FAMOTIDINE [Concomitant]
     Active Substance: FAMOTIDINE
  7. FELODIPINE [Concomitant]
     Active Substance: FELODIPINE
  8. IRON [Concomitant]
     Active Substance: IRON
  9. JANUMET XR [Concomitant]
     Active Substance: METFORMIN HYDROCHLORIDE\SITAGLIPTIN PHOSPHATE
  10. LOKELMA PAK [Concomitant]

REACTIONS (1)
  - Hypertension [None]
